FAERS Safety Report 10219873 (Version 1)
Quarter: 2014Q2

REPORT INFORMATION
  Report Type: Spontaneous
  Country: PT (occurrence: PT)
  Receive Date: 20140605
  Receipt Date: 20140605
  Transmission Date: 20141212
  Serious: Yes (Other)
  Sender: FDA-Public Use
  Company Number: PT-ASTRAZENECA-2014SE38376

PATIENT
  Age: 25419 Day
  Sex: Male
  Weight: 72 kg

DRUGS (2)
  1. ZOLADEX [Suspect]
     Indication: PROSTATE CANCER
     Route: 058
     Dates: start: 20110110, end: 20110110
  2. VENTILAN INHALADOR [Concomitant]
     Indication: ASTHMA
     Route: 055

REACTIONS (3)
  - Respiratory distress [Recovered/Resolved]
  - Dyspnoea [Unknown]
  - Oedema [Unknown]
